FAERS Safety Report 6871721-6 (Version None)
Quarter: 2010Q3

REPORT INFORMATION
  Report Type: 
  Country: None (occurrence: None)
  Receive Date: 20100723
  Receipt Date: 20100715
  Transmission Date: 20110219
  Serious: Yes (Hospitalization, Other)
  Sender: FDA-Public Use
  Company Number: A0855730A

PATIENT
  Sex: Female

DRUGS (1)
  1. SERETIDE [Suspect]
     Indication: CHRONIC OBSTRUCTIVE PULMONARY DISEASE
     Dosage: 2PUFF PER DAY
     Route: 065
     Dates: start: 20100201, end: 20100201

REACTIONS (6)
  - BRONCHOSPASM [None]
  - CYANOSIS CENTRAL [None]
  - DYSPNOEA [None]
  - HYPOTENSION [None]
  - MALAISE [None]
  - PARADOXICAL DRUG REACTION [None]
